FAERS Safety Report 13968534 (Version 1)
Quarter: 2017Q3

REPORT INFORMATION
  Report Type: Spontaneous
  Country: US (occurrence: US)
  Receive Date: 20170914
  Receipt Date: 20170914
  Transmission Date: 20171128
  Serious: No
  Sender: FDA-Public Use
  Company Number: US-ASTRAZENECA-2017SE94257

PATIENT
  Age: 59 Year
  Sex: Female
  Weight: 60.8 kg

DRUGS (1)
  1. RHINOCORT ALLERGY [Suspect]
     Active Substance: BUDESONIDE
     Indication: SINUS DISORDER
     Route: 045
     Dates: start: 20170828, end: 20170828

REACTIONS (7)
  - Back pain [Recovering/Resolving]
  - Asthenia [Recovering/Resolving]
  - Incorrect dose administered [Recovering/Resolving]
  - Malaise [Recovering/Resolving]
  - Dizziness [Recovering/Resolving]
  - Vomiting [Recovering/Resolving]
  - Pulmonary pain [Recovering/Resolving]

NARRATIVE: CASE EVENT DATE: 20170828
